FAERS Safety Report 4299152-6 (Version None)
Quarter: 2004Q1

REPORT INFORMATION
  Report Type: 
  Country: None (occurrence: None)
  Receive Date: 20040217
  Receipt Date: 20040217
  Transmission Date: 20041129
  Serious: Yes (Other)
  Sender: FDA-Public Use
  Company Number: None

PATIENT
  Age: 21 Year
  Sex: Female
  Weight: 49.8957 kg

DRUGS (2)
  1. REGLAN [Suspect]
     Indication: GASTROINTESTINAL MOTILITY DISORDER
     Dosage: 5 MG TID ORAL
     Route: 048
     Dates: start: 20031110, end: 20031112
  2. ZYPREXA [Suspect]
     Indication: PSYCHOTIC DISORDER
     Dosage: 3.75MG Q HS ORAL
     Route: 048
     Dates: start: 20031028, end: 20031112

REACTIONS (8)
  - CHEST DISCOMFORT [None]
  - CONFUSIONAL STATE [None]
  - CORNEAL REFLEX DECREASED [None]
  - LETHARGY [None]
  - MOVEMENT DISORDER [None]
  - PARKINSONIAN REST TREMOR [None]
  - PARKINSONISM [None]
  - TONGUE DISORDER [None]
